FAERS Safety Report 10034088 (Version 1)
Quarter: 2014Q1

REPORT INFORMATION
  Report Type: Report from Study
  Country: FR (occurrence: FR)
  Receive Date: 20140325
  Receipt Date: 20140325
  Transmission Date: 20141002
  Serious: Yes (Hospitalization)
  Sender: FDA-Public Use
  Company Number: FR-ROCHE-1365154

PATIENT
  Sex: Female

DRUGS (4)
  1. RITUXIMAB [Suspect]
     Indication: RHEUMATOID ARTHRITIS
     Route: 065
     Dates: start: 20080220
  2. RITUXIMAB [Suspect]
     Route: 065
     Dates: start: 20080305
  3. METHOTREXATE [Concomitant]
  4. INSULINE [Concomitant]

REACTIONS (5)
  - Perforated ulcer [Not Recovered/Not Resolved]
  - Osteitis [Recovered/Resolved]
  - Diabetic retinopathy [Unknown]
  - Asphyxia [Recovered/Resolved with Sequelae]
  - Acute pulmonary oedema [Recovered/Resolved with Sequelae]
